FAERS Safety Report 6379631-8 (Version None)
Quarter: 2009Q3

REPORT INFORMATION
  Report Type: 
  Country: None (occurrence: None)
  Receive Date: 20090928
  Receipt Date: 20090922
  Transmission Date: 20100115
  Serious: Yes (Hospitalization)
  Sender: FDA-Public Use
  Company Number: CH-ROXANE LABORATORIES, INC.-2009-RO-00975RO

PATIENT
  Age: 43 Year
  Sex: Male

DRUGS (7)
  1. PREDNISONE TAB [Suspect]
     Indication: COLITIS ULCERATIVE
     Dosage: 50 MG
  2. PREDNISONE TAB [Suspect]
     Dosage: 40 MG
  3. PREDNISONE TAB [Suspect]
     Dosage: 50 MG
  4. AZATHIOPRINE [Suspect]
     Indication: COLITIS ULCERATIVE
     Dosage: 50 MG
  5. AZATHIOPRINE [Suspect]
     Dosage: 100 MG
  6. LAMIVUDINE [Suspect]
     Indication: HEPATITIS B
  7. ANTI-HEPATITS B SURFACE ANTIGEN IMMUNOGLOBULINS [Concomitant]
     Indication: ANTIVIRAL PROPHYLAXIS

REACTIONS (6)
  - COAGULOPATHY [None]
  - HEPATIC ENCEPHALOPATHY [None]
  - HEPATIC FAILURE [None]
  - HEPATITIS B [None]
  - LIVER GRAFT LOSS [None]
  - PERITONITIS BACTERIAL [None]
